FAERS Safety Report 7042655-1 (Version None)
Quarter: 2010Q4

REPORT INFORMATION
  Report Type: 
  Country: None (occurrence: None)
  Receive Date: 20101013
  Receipt Date: 20100701
  Transmission Date: 20110411
  Serious: No
  Sender: FDA-Public Use
  Company Number: US-ASTRAZENECA-2010SE30837

PATIENT
  Age: 61 Year
  Sex: Female
  Weight: 71.7 kg

DRUGS (11)
  1. SYMBICORT [Suspect]
     Indication: ASTHMA
     Dosage: 160 MCG
     Route: 055
     Dates: start: 20100101
  2. POTASSIUM CHLORIDE [Concomitant]
  3. LASIX [Concomitant]
  4. DIGOXIN [Concomitant]
  5. ANTIHISMIN [Concomitant]
  6. AMPERSOL [Concomitant]
  7. FLUCANASE [Concomitant]
     Route: 055
  8. CYANOCOBALAMIN [Concomitant]
  9. KLONAZIPAM [Concomitant]
  10. MAXAIR [Concomitant]
  11. ALBUTEROL [Concomitant]

REACTIONS (4)
  - APHONIA [None]
  - HEADACHE [None]
  - PHARYNGEAL OEDEMA [None]
  - THROAT TIGHTNESS [None]
